FAERS Safety Report 20791172 (Version 3)
Quarter: 2022Q4

REPORT INFORMATION
  Report Type: Spontaneous
  Country: US (occurrence: US)
  Receive Date: 20220505
  Receipt Date: 20221101
  Transmission Date: 20230113
  Serious: Yes (Other)
  Sender: FDA-Public Use
  Company Number: US-PFIZER INC-202200624902

PATIENT
  Age: 73 Year
  Sex: Female

DRUGS (1)
  1. IBRANCE [Suspect]
     Active Substance: PALBOCICLIB
     Dosage: UNK

REACTIONS (9)
  - Peripheral nerve injury [Unknown]
  - Coeliac disease [Unknown]
  - Diverticulitis [Unknown]
  - Illness [Unknown]
  - Abdominal discomfort [Unknown]
  - Fatigue [Unknown]
  - Inflammation [Unknown]
  - Pruritus [Unknown]
  - Scratch [Unknown]
